FAERS Safety Report 18904689 (Version 2)
Quarter: 2021Q1

REPORT INFORMATION
  Report Type: Spontaneous
  Country: JP (occurrence: JP)
  Receive Date: 20210217
  Receipt Date: 20210224
  Transmission Date: 20210420
  Serious: Yes (Other)
  Sender: FDA-Public Use
  Company Number: NVSC2021JP036848

PATIENT

DRUGS (5)
  1. HYDROCORTISONE. [Suspect]
     Active Substance: HYDROCORTISONE
     Indication: NON-HODGKIN^S LYMPHOMA
     Dosage: 100 MG, Q3W, 21 DAY CYCLE
     Route: 065
  2. VINCRISTINE [Suspect]
     Active Substance: VINCRISTINE
     Indication: NON-HODGKIN^S LYMPHOMA
     Dosage: 1 MG, Q3W, ON DAY 2, 21 DAY CYCLE
     Route: 042
  3. ETOPOSIDE. [Suspect]
     Active Substance: ETOPOSIDE
     Indication: NON-HODGKIN^S LYMPHOMA
     Dosage: 25 MG, Q3W, ON DAYS 3 AND 4, 21 DAY CYCLE
     Route: 065
  4. METHOTREXATE. [Suspect]
     Active Substance: METHOTREXATE
     Indication: NON-HODGKIN^S LYMPHOMA
     Dosage: 20 G, Q3W20 MG, Q3W, DAY 1, 21 DAY CYCLE
     Route: 048
  5. SOBUZOXANE [Suspect]
     Active Substance: SOBUZOXANE
     Indication: NON-HODGKIN^S LYMPHOMA
     Dosage: 400 MG, Q3W, 21 DAY CYCLE
     Route: 048

REACTIONS (1)
  - Febrile neutropenia [Unknown]
